FAERS Safety Report 11289964 (Version 1)
Quarter: 2015Q3

REPORT INFORMATION
  Report Type: Spontaneous
  Country: US (occurrence: US)
  Receive Date: 20150721
  Receipt Date: 20150721
  Transmission Date: 20151125
  Serious: Yes (Other)
  Sender: FDA-Public Use
  Company Number: US-SEBELA IRELAND LIMITED-2015SEB00053

PATIENT
  Sex: Female

DRUGS (2)
  1. COUMADIN [Concomitant]
     Active Substance: WARFARIN SODIUM
     Dosage: UNK
     Dates: start: 20150707
  2. MIACALCIN [Suspect]
     Active Substance: CALCITONIN SALMON
     Dosage: UNK
     Dates: start: 20150707

REACTIONS (4)
  - Paralysis [Unknown]
  - Bedridden [Unknown]
  - Foot fracture [None]
  - Multiple fractures [Not Recovered/Not Resolved]

NARRATIVE: CASE EVENT DATE: 20150707
